FAERS Safety Report 22801449 (Version 5)
Quarter: 2024Q2

REPORT INFORMATION
  Report Type: Report from Study
  Country: US (occurrence: US)
  Receive Date: 20230809
  Receipt Date: 20240411
  Transmission Date: 20240716
  Serious: Yes (Hospitalization, Other)
  Sender: FDA-Public Use
  Company Number: US-DECIPHERA PHARMACEUTICALS LLC-2023US000716

PATIENT
  Age: 71 Year
  Sex: Male

DRUGS (1)
  1. QINLOCK [Suspect]
     Active Substance: RIPRETINIB
     Indication: Gastrointestinal stromal tumour
     Dosage: 200 MILLIGRAM, BID
     Route: 048

REACTIONS (3)
  - Prostate cancer [Recovered/Resolved]
  - Mitral valve incompetence [Recovered/Resolved]
  - Liver abscess [Recovered/Resolved]
